FAERS Safety Report 7438111-9 (Version None)
Quarter: 2011Q2

REPORT INFORMATION
  Report Type: 
  Country: None (occurrence: None)
  Receive Date: 20110420
  Receipt Date: 20110407
  Transmission Date: 20111010
  Serious: Yes (Disabling)
  Sender: FDA-Public Use
  Company Number: 028020

PATIENT
  Sex: Male
  Weight: 78 kg

DRUGS (4)
  1. ORFIRIL [Concomitant]
  2. LAMOTRIGINE [Concomitant]
  3. FRISIUM [Concomitant]
  4. LACOSAMIDE [Suspect]
     Indication: EPILEPSY
     Dosage: 25 MG QD, ORAL; 450 MG BID, VIMPAT WILL BE INCREASED BY 25 MG EVERY 14 DAYS, ORAL
     Route: 048
     Dates: start: 20110219

REACTIONS (3)
  - BLINDNESS [None]
  - MYDRIASIS [None]
  - VISION BLURRED [None]
